FAERS Safety Report 14655694 (Version 3)
Quarter: 2018Q2

REPORT INFORMATION
  Report Type: Spontaneous
  Country: US (occurrence: US)
  Receive Date: 20180319
  Receipt Date: 20180418
  Transmission Date: 20180711
  Serious: No
  Sender: FDA-Public Use
  Company Number: US-PFIZER INC-2018110508

PATIENT
  Age: 4 Month
  Sex: Female

DRUGS (1)
  1. EUCRISA [Suspect]
     Active Substance: CRISABOROLE
     Indication: DERMATITIS ATOPIC
     Dosage: UNK UNK, 2X/DAY (TO FACE TWICE A DAY FOR 2 WEEKS, THEN STOP AND REPEAT AS NEEDED)
     Route: 061
     Dates: start: 20180309

REACTIONS (3)
  - Crying [Unknown]
  - Drug ineffective [Unknown]
  - Drug administered to patient of inappropriate age [Unknown]

NARRATIVE: CASE EVENT DATE: 201803
